FAERS Safety Report 9489366 (Version 2)
Quarter: 2013Q3

REPORT INFORMATION
  Report Type: Spontaneous
  Country: IE (occurrence: IE)
  Receive Date: 20130829
  Receipt Date: 20130905
  Transmission Date: 20140515
  Serious: Yes (Death, Hospitalization)
  Sender: FDA-Public Use
  Company Number: PHHY2013IE093996

PATIENT
  Age: 72 Year
  Sex: Male

DRUGS (5)
  1. DEXAMETHASONE [Suspect]
     Dosage: 16 MG, UNK
     Route: 042
  2. METHOTREXATE [Suspect]
     Indication: RHEUMATOID ARTHRITIS
     Dosage: 12.5 MG, QW
     Route: 048
  3. AMIODARONE [Concomitant]
  4. PIPERACILLIN/TAZOBACTAM [Concomitant]
  5. GENTAMICIN [Concomitant]

REACTIONS (8)
  - Death [Fatal]
  - Necrotising fasciitis [Unknown]
  - Joint swelling [Unknown]
  - Purulent discharge [Unknown]
  - Livedo reticularis [Unknown]
  - Erythema [Unknown]
  - Infective tenosynovitis [Unknown]
  - Cellulitis [Unknown]
